FAERS Safety Report 10705805 (Version 1)
Quarter: 2015Q1

REPORT INFORMATION
  Report Type: Spontaneous
  Country: US (occurrence: US)
  Receive Date: 20150112
  Receipt Date: 20150112
  Transmission Date: 20150721
  Serious: Yes (Hospitalization)
  Sender: FDA-Public Use
  Company Number: US-GLAXOSMITHKLINE-US2015GSK002617

PATIENT
  Sex: Female

DRUGS (5)
  1. ALBUTEROL SULFATE. [Concomitant]
     Active Substance: ALBUTEROL SULFATE
  2. ADVAIR DISKUS [Suspect]
     Active Substance: FLUTICASONE PROPIONATE\SALMETEROL XINAFOATE
     Indication: ASTHMA
     Dosage: 250/50, 1 PUFF(S), BID
     Route: 055
  3. FLU VACCINE SOLUTION FOR INJECTION [Concomitant]
  4. ADVAIR DISKUS [Suspect]
     Active Substance: FLUTICASONE PROPIONATE\SALMETEROL XINAFOATE
     Dosage: 100/50, 1 PUFF(S), TID
     Route: 055
  5. ADVAIR DISKUS [Suspect]
     Active Substance: FLUTICASONE PROPIONATE\SALMETEROL XINAFOATE
     Dosage: 100/50, 1 PUFF(S), BID
     Route: 055

REACTIONS (5)
  - Drug ineffective [Recovering/Resolving]
  - Inappropriate schedule of drug administration [Unknown]
  - Hypersensitivity [Unknown]
  - Drug administration error [Unknown]
  - Dyspnoea [Recovered/Resolved]

NARRATIVE: CASE EVENT DATE: 2012
